FAERS Safety Report 6397612-5 (Version None)
Quarter: 2009Q4

REPORT INFORMATION
  Report Type: 
  Country: None (occurrence: None)
  Receive Date: 20091012
  Receipt Date: 20091007
  Transmission Date: 20100525
  Serious: Yes (Death, Hospitalization)
  Sender: FDA-Public Use
  Company Number: PHHY2009CA42061

PATIENT
  Sex: Male

DRUGS (4)
  1. CLOZARIL [Suspect]
     Indication: SCHIZOPHRENIA
     Dosage: UNK
     Dates: start: 20090801
  2. GABAPENTIN [Concomitant]
  3. ZYPREXA [Concomitant]
  4. CLOPIXOL DEPOT [Concomitant]

REACTIONS (3)
  - PNEUMONIA [None]
  - PULMONARY FIBROSIS [None]
  - SUPERINFECTION [None]
